FAERS Safety Report 7092786-5 (Version None)
Quarter: 2010Q4

REPORT INFORMATION
  Report Type: 
  Country: None (occurrence: None)
  Receive Date: 20101110
  Receipt Date: 20101103
  Transmission Date: 20110411
  Serious: No
  Sender: FDA-Public Use
  Company Number: US-PFIZER INC-2010140357

PATIENT
  Sex: Female
  Weight: 47.619 kg

DRUGS (2)
  1. DILANTIN [Suspect]
     Indication: CONVULSION
     Dosage: 100 MG, 2X/DAY
     Route: 048
     Dates: start: 19780101
  2. PHENOBARBITAL [Concomitant]
     Dosage: UNK

REACTIONS (1)
  - DRUG LEVEL CHANGED [None]
